FAERS Safety Report 17571824 (Version 1)
Quarter: 2020Q1

REPORT INFORMATION
  Report Type: Spontaneous
  Country: FR (occurrence: FR)
  Receive Date: 20200323
  Receipt Date: 20200323
  Transmission Date: 20200409
  Serious: Yes (Hospitalization)
  Sender: FDA-Public Use
  Company Number: NVSC2020FR076190

PATIENT
  Age: 9 Year
  Sex: Male
  Weight: 24 kg

DRUGS (2)
  1. CEFAZOLINE [Suspect]
     Active Substance: CEFAZOLIN SODIUM
     Indication: OSTEOMYELITIS
     Dosage: 3600 MG, QD
     Route: 042
     Dates: start: 20191102, end: 20191113
  2. CEFADROXIL. [Suspect]
     Active Substance: CEFADROXIL
     Indication: OSTEOMYELITIS
     Dosage: 3600 MG, QD
     Route: 048
     Dates: start: 20191113, end: 20191203

REACTIONS (1)
  - Drug reaction with eosinophilia and systemic symptoms [Not Recovered/Not Resolved]

NARRATIVE: CASE EVENT DATE: 20191130
